FAERS Safety Report 6495357-4 (Version None)
Quarter: 2009Q4

REPORT INFORMATION
  Report Type: 
  Country: None (occurrence: None)
  Receive Date: 20091214
  Receipt Date: 20090608
  Transmission Date: 20100525
  Serious: No
  Sender: FDA-Public Use
  Company Number: US-BRISTOL-MYERS SQUIBB COMPANY-14653950

PATIENT
  Age: 40 Year
  Sex: Female

DRUGS (3)
  1. ABILIFY [Suspect]
     Indication: DEPRESSION
     Dosage: INCREASED FROM 5 MG TO 20 MG(2 MONTHS) DOSE REDUCED TO 10 MG
  2. ABILIFY [Suspect]
     Indication: BORDERLINE PERSONALITY DISORDER
     Dosage: INCREASED FROM 5 MG TO 20 MG(2 MONTHS) DOSE REDUCED TO 10 MG
  3. ABILIFY [Suspect]
     Indication: PSYCHOTIC DISORDER
     Dosage: INCREASED FROM 5 MG TO 20 MG(2 MONTHS) DOSE REDUCED TO 10 MG

REACTIONS (1)
  - TARDIVE DYSKINESIA [None]
